FAERS Safety Report 7807576-2 (Version None)
Quarter: 2011Q4

REPORT INFORMATION
  Report Type: 
  Country: None (occurrence: None)
  Receive Date: 20111011
  Receipt Date: 20110929
  Transmission Date: 20120403
  Serious: Yes (Hospitalization, Other)
  Sender: FDA-Public Use
  Company Number: PHHY2010MX80567

PATIENT
  Age: 85 Year
  Sex: Male

DRUGS (4)
  1. LOSARTAN POTASSIUM [Concomitant]
     Dosage: UNK UKN, UNK
  2. MIDAZOLAM HCL [Concomitant]
     Dosage: UNK UKN, UNK
  3. ASPIRIN [Concomitant]
     Dosage: UNK UKN, UNK
  4. DIOVAN [Suspect]
     Indication: HYPERTENSION
     Dosage: 160 MG, DIALY
     Route: 048
     Dates: start: 20051101, end: 20100929

REACTIONS (5)
  - PNEUMONIA [None]
  - RECTAL HAEMORRHAGE [None]
  - GASTRIC ULCER [None]
  - URETHRAL HAEMORRHAGE [None]
  - ANAEMIA [None]
